FAERS Safety Report 4531036-8 (Version None)
Quarter: 2004Q4

REPORT INFORMATION
  Report Type: 
  Country: None (occurrence: None)
  Receive Date: 20041126
  Receipt Date: 20040805
  Transmission Date: 20050328
  Serious: No
  Sender: FDA-Public Use
  Company Number: SU-2004-002442

PATIENT
  Age: 61 Year
  Sex: Male
  Weight: 99.7913 kg

DRUGS (16)
  1. BENICAR [Suspect]
     Indication: HYPERTENSION
     Dosage: 40 MG QD PO
     Route: 048
     Dates: start: 20040508
  2. VIAGRA [Suspect]
  3. XANAX - SLOW RELEASE [Concomitant]
  4. XANAX [Concomitant]
  5. WELLBUTRIN [Concomitant]
  6. LEXAPRO [Concomitant]
  7. DITROPAN [Concomitant]
  8. LAMICTAL [Concomitant]
  9. TENORMIN [Concomitant]
  10. TORSEMIDE [Concomitant]
  11. WARFARIN SODIUM [Concomitant]
  12. CELEBREX [Concomitant]
  13. LIPITOR [Concomitant]
  14. K-DUR [Concomitant]
  15. PRILOSEC [Concomitant]
  16. TYLENOL (CAPLET) [Concomitant]

REACTIONS (3)
  - BLOOD PRESSURE DECREASED [None]
  - DRUG INTERACTION [None]
  - SOMNOLENCE [None]
